FAERS Safety Report 7622889-5 (Version None)
Quarter: 2011Q3

REPORT INFORMATION
  Report Type: 
  Country: None (occurrence: None)
  Receive Date: 20110720
  Receipt Date: 20110707
  Transmission Date: 20111222
  Serious: Yes (Hospitalization, Other)
  Sender: FDA-Public Use
  Company Number: US-ELI_LILLY_AND_COMPANY-US201105001490

PATIENT
  Sex: Female

DRUGS (17)
  1. SYMBICORT [Concomitant]
  2. LIDODERM [Concomitant]
  3. FENTANYL-100 [Concomitant]
  4. LOMOTIL [Concomitant]
  5. FORTEO [Suspect]
     Dosage: 20 UG, QD
     Route: 065
  6. DILAUDID [Concomitant]
  7. XANAX [Concomitant]
  8. CELEXA [Concomitant]
  9. CALCIUM CARBONATE [Concomitant]
  10. FLECTOR                            /00372302/ [Concomitant]
  11. NASAL SPRAY [Concomitant]
  12. PROAIR HFA [Concomitant]
  13. MULTI-VITAMINS [Concomitant]
  14. LONOX [Concomitant]
  15. VITAMIN D [Concomitant]
  16. AMBIEN [Concomitant]
  17. FORTEO [Suspect]
     Indication: OSTEOPOROSIS
     Dosage: 20 UG, DAILY (1/D)
     Route: 065
     Dates: start: 20110409

REACTIONS (12)
  - KIDNEY INFECTION [None]
  - HOT FLUSH [None]
  - CYSTITIS [None]
  - HAEMORRHAGE URINARY TRACT [None]
  - HAEMATURIA [None]
  - INJECTION SITE PAIN [None]
  - RENAL IMPAIRMENT [None]
  - NEPHROLITHIASIS [None]
  - DYSURIA [None]
  - POLYP [None]
  - OEDEMA PERIPHERAL [None]
  - LOCALISED OEDEMA [None]
